FAERS Safety Report 17516407 (Version 2)
Quarter: 2020Q2

REPORT INFORMATION
  Report Type: Spontaneous
  Country: US (occurrence: US)
  Receive Date: 20200309
  Receipt Date: 20200612
  Transmission Date: 20200713
  Serious: Yes (Hospitalization, Other)
  Sender: FDA-Public Use
  Company Number: US-PFIZER INC-2020101821

PATIENT
  Age: 65 Year
  Sex: Female
  Weight: 74.38 kg

DRUGS (1)
  1. ELETRIPTAN HBR [Suspect]
     Active Substance: ELETRIPTAN HYDROBROMIDE
     Indication: MIGRAINE
     Dosage: 20 MG 1 - 2
     Dates: start: 2019

REACTIONS (5)
  - Drug ineffective [Unknown]
  - Disturbance in attention [Not Recovered/Not Resolved]
  - Seizure [Not Recovered/Not Resolved]
  - Disease recurrence [Not Recovered/Not Resolved]
  - Thinking abnormal [Not Recovered/Not Resolved]

NARRATIVE: CASE EVENT DATE: 2019
